FAERS Safety Report 7037720-9 (Version None)
Quarter: 2010Q4

REPORT INFORMATION
  Report Type: 
  Country: None (occurrence: None)
  Receive Date: 20101011
  Receipt Date: 20101006
  Transmission Date: 20110411
  Serious: Yes (Hospitalization)
  Sender: FDA-Public Use
  Company Number: CH-MERCK-1010USA00696

PATIENT
  Age: 78 Year
  Sex: Female
  Weight: 51 kg

DRUGS (6)
  1. COZAAR [Suspect]
     Indication: HYPERTENSION
     Route: 048
     Dates: end: 20100801
  2. METOJECT [Suspect]
     Indication: PEMPHIGOID
     Route: 058
     Dates: start: 20100701, end: 20100827
  3. PREDNISONE [Suspect]
     Indication: PEMPHIGOID
     Route: 048
     Dates: start: 20100701
  4. CALCIUM SANDOZ FORTE D [Suspect]
     Indication: PROPHYLAXIS
     Route: 048
     Dates: start: 20100701, end: 20100801
  5. FOLIC ACID [Concomitant]
     Indication: PROPHYLAXIS
     Route: 048
     Dates: start: 20100701
  6. POTASSIUM CHLORIDE [Concomitant]
     Indication: HYPOKALAEMIA
     Route: 048
     Dates: start: 20100701

REACTIONS (6)
  - COUGH [None]
  - DELIRIUM [None]
  - DYSPNOEA [None]
  - HYPERCALCAEMIA [None]
  - LUNG INFILTRATION [None]
  - NORMOCHROMIC NORMOCYTIC ANAEMIA [None]
